FAERS Safety Report 11413994 (Version 6)
Quarter: 2015Q4

REPORT INFORMATION
  Report Type: Report from Study
  Country: BR (occurrence: BR)
  Receive Date: 20150824
  Receipt Date: 20151120
  Transmission Date: 20160304
  Serious: Yes (Life-Threatening, Other)
  Sender: FDA-Public Use
  Company Number: PHHY2015BR086424

PATIENT
  Age: 50 Year
  Sex: Female
  Weight: 73 kg

DRUGS (8)
  1. GILENYA [Suspect]
     Active Substance: FINGOLIMOD HYDROCHLORIDE
     Dosage: 1 DF, QD
     Route: 048
     Dates: start: 20150205
  2. CYCLOBENZAPRINE HYDROCHLORIDE. [Concomitant]
     Active Substance: CYCLOBENZAPRINE HYDROCHLORIDE
     Indication: RHEUMATIC DISORDER
     Dosage: 3 DF, QD (3 MONTHS BASED ON 20 OCT 2015
     Route: 048
  3. ZOLPIDEM HEMITARTRATE [Concomitant]
     Active Substance: ZOLPIDEM\ZOLPIDEM TARTRATE
     Indication: RHEUMATIC DISORDER
     Dosage: 1 DF, QD (3 MONTHS BEFORE 20 OCT 2015
     Route: 048
  4. LIRICA [Concomitant]
     Active Substance: PREGABALIN
     Indication: RHEUMATIC DISORDER
     Dosage: 1 DF, QD (3 MONTHS AGO BASED ON 20 OCT 2015
     Route: 048
  5. OMEPRAZOLE. [Concomitant]
     Active Substance: OMEPRAZOLE
     Indication: PROPHYLAXIS AGAINST GASTROINTESTINAL ULCER
     Dosage: 2 DF, QHS (3 MONTHS BEFORE 20 OCT 2015
     Route: 048
  6. GILENYA [Suspect]
     Active Substance: FINGOLIMOD HYDROCHLORIDE
     Indication: MULTIPLE SCLEROSIS
     Dosage: 0.5 MG, UNK
     Route: 048
  7. GILENYA [Suspect]
     Active Substance: FINGOLIMOD HYDROCHLORIDE
     Dosage: 1 DF, QD
     Route: 048
  8. AMITRIPTYLINE HCL [Concomitant]
     Active Substance: AMITRIPTYLINE
     Indication: RHEUMATIC DISORDER
     Dosage: 2 DF, QHS (5 YEARS BEFORE 20 OCT 2015
     Route: 048

REACTIONS (8)
  - Loss of consciousness [Recovering/Resolving]
  - Oropharyngeal pain [Recovering/Resolving]
  - Blindness [Recovering/Resolving]
  - Gait disturbance [Recovering/Resolving]
  - Cardiac disorder [Unknown]
  - Palpitations [Recovering/Resolving]
  - Feeling abnormal [Recovering/Resolving]
  - Laboratory test abnormal [Unknown]

NARRATIVE: CASE EVENT DATE: 20150205
